FAERS Safety Report 25720670 (Version 3)
Quarter: 2025Q3

REPORT INFORMATION
  Report Type: Spontaneous
  Country: EU (occurrence: EU)
  Receive Date: 20250825
  Receipt Date: 20250906
  Transmission Date: 20251020
  Serious: Yes (Other)
  Sender: SANDOZ
  Company Number: EU-SANDOZ-SDZ2025FR060757

PATIENT
  Age: 53 Year
  Sex: Male
  Weight: 85 kg

DRUGS (1)
  1. ERELZI [Suspect]
     Active Substance: ETANERCEPT-SZZS
     Indication: Product used for unknown indication
     Dosage: UNK, QW (50MG)
     Route: 058
     Dates: start: 20250710

REACTIONS (7)
  - Loss of consciousness [Recovered/Resolved]
  - Injection site pain [Recovered/Resolved]
  - Fall [Recovered/Resolved]
  - Contusion [Unknown]
  - Feeling abnormal [Recovered/Resolved]
  - Injection site bruising [Unknown]
  - Product substitution issue [Unknown]

NARRATIVE: CASE EVENT DATE: 20250711
